FAERS Safety Report 14327257 (Version 1)
Quarter: 2017Q4

REPORT INFORMATION
  Report Type: Spontaneous
  Country: CA (occurrence: CA)
  Receive Date: 20171227
  Receipt Date: 20171227
  Transmission Date: 20180321
  Serious: Yes (Other)
  Sender: FDA-Public Use
  Company Number: CA-ROCHE-2045150

PATIENT
  Sex: Female

DRUGS (3)
  1. XOLAIR [Suspect]
     Active Substance: OMALIZUMAB
     Indication: ASTHMA
     Dosage: 150 MG, EVERY 4 WEEKS?POWDER AND SOLVENT FOR SOLUTION FOR INJECTION
     Route: 058
     Dates: start: 20140603
  2. XOLAIR [Suspect]
     Active Substance: OMALIZUMAB
     Dosage: UNK?POWDER AND SOLVENT FOR SOLUTION FOR INJECTION
     Route: 058
     Dates: start: 20171117
  3. LYRICA [Concomitant]
     Active Substance: PREGABALIN
     Indication: PRODUCT USED FOR UNKNOWN INDICATION
     Dosage: (STARTED 1 MONTH AGO)
     Route: 065

REACTIONS (4)
  - Foot fracture [Unknown]
  - Fall [Unknown]
  - Thrombosis [Unknown]
  - Ligament sprain [Unknown]

NARRATIVE: CASE EVENT DATE: 2017
